FAERS Safety Report 7943580-1 (Version None)
Quarter: 2011Q4

REPORT INFORMATION
  Report Type: 
  Country: None (occurrence: None)
  Receive Date: 20111128
  Receipt Date: 20111121
  Transmission Date: 20120403
  Serious: Yes (Death, Life-Threatening)
  Sender: FDA-Public Use
  Company Number: US-ROXANE LABORATORIES, INC.-2011-RO-01668RO

PATIENT
  Age: 66 Year
  Sex: Male

DRUGS (4)
  1. IVERMECTIN [Suspect]
     Indication: STRONGYLOIDIASIS
     Route: 048
  2. ALBENDAZOLE [Suspect]
     Indication: STRONGYLOIDIASIS
     Dosage: 400 MG
     Route: 048
  3. MYCOPHENOLATE MOFETIL [Suspect]
     Dosage: 2 G
     Route: 048
  4. PREDNISONE TAB [Suspect]
     Indication: PEMPHIGUS
     Dosage: 60 MG
     Route: 048

REACTIONS (5)
  - DISSEMINATED INTRAVASCULAR COAGULATION [None]
  - ACUTE RESPIRATORY DISTRESS SYNDROME [None]
  - BACTERIAL SEPSIS [None]
  - STRONGYLOIDIASIS [None]
  - SEPTIC SHOCK [None]
